FAERS Safety Report 7817980-4 (Version None)
Quarter: 2011Q4

REPORT INFORMATION
  Report Type: 
  Country: None (occurrence: None)
  Receive Date: 20111017
  Receipt Date: 20111007
  Transmission Date: 20120403
  Serious: Yes (Life-Threatening, Hospitalization)
  Sender: FDA-Public Use
  Company Number: CH-GLAXOSMITHKLINE-B0755782A

PATIENT
  Age: 67 Year
  Sex: Male

DRUGS (11)
  1. FENTANYL [Concomitant]
     Dates: start: 20110517, end: 20110517
  2. CLEMASTINE FUMARATE [Concomitant]
  3. ZANTAC [Concomitant]
  4. SOLU-MEDROL [Concomitant]
  5. ULTIVA [Concomitant]
     Dates: start: 20110517, end: 20110517
  6. PROPOFOL [Concomitant]
     Dates: start: 20110517, end: 20110517
  7. ROCURONIUM BROMIDE [Concomitant]
     Dates: start: 20110517, end: 20110517
  8. METHADONE HCL [Concomitant]
     Dates: start: 20110517, end: 20110517
  9. CLORAZEPATE DIPOTASSIUM [Concomitant]
     Dates: start: 20110517, end: 20110517
  10. CEFUROXIME [Suspect]
     Indication: PROPHYLACTIC CHEMOTHERAPY
     Dosage: 1.5MG SINGLE DOSE
     Route: 042
     Dates: start: 20110517, end: 20110517
  11. DOSPIR [Concomitant]

REACTIONS (6)
  - ATELECTASIS [None]
  - HYPOTENSION [None]
  - RENAL FAILURE ACUTE [None]
  - BRONCHOSPASM [None]
  - ANAPHYLACTIC REACTION [None]
  - LACTIC ACIDOSIS [None]
